FAERS Safety Report 9397048 (Version 3)
Quarter: 2014Q1

REPORT INFORMATION
  Report Type: Spontaneous
  Country: US (occurrence: US)
  Receive Date: 20130712
  Receipt Date: 20140123
  Transmission Date: 20141002
  Serious: No
  Sender: FDA-Public Use
  Company Number: US-PFIZER INC-2013203411

PATIENT
  Age: 62 Year
  Sex: Female
  Weight: 42.63 kg

DRUGS (5)
  1. LYRICA [Suspect]
     Indication: VULVOVAGINAL PAIN
     Dosage: 50 MG, DAILY
     Route: 048
  2. LYRICA [Suspect]
     Dosage: 75 MG, TID
     Route: 048
  3. KLONOPIN [Concomitant]
     Dosage: UNK
  4. PRILOSEC [Concomitant]
  5. SURFAC [Concomitant]
     Indication: FAECES HARD

REACTIONS (8)
  - Off label use [Unknown]
  - Folliculitis [Unknown]
  - Irritable bowel syndrome [Unknown]
  - Blood cholesterol increased [Unknown]
  - Stress [Unknown]
  - Therapeutic response unexpected [Unknown]
  - Eating disorder [Unknown]
  - Blood cholesterol abnormal [Unknown]
